FAERS Safety Report 6237805-0 (Version None)
Quarter: 2009Q2

REPORT INFORMATION
  Report Type: 
  Country: None (occurrence: None)
  Receive Date: 20090617
  Receipt Date: 20090601
  Transmission Date: 20091009
  Serious: Yes (Other)
  Sender: FDA-Public Use
  Company Number: 2009RR-24596

PATIENT
  Age: 15 Year
  Sex: Female

DRUGS (6)
  1. FLUOXETINE [Suspect]
     Indication: ANOREXIA NERVOSA
     Dosage: 20 MG, QD, 40 MG, UNK, 60 MG, QD
  2. OLANZAPINE [Suspect]
     Indication: ANOREXIA NERVOSA
     Dosage: 5 MG, QD, 2.5 MG, QD
  3. RISPERIDONE [Suspect]
     Dosage: 0.25 MG, QD, 0.5 MG, QD, 0.75 MG, QD
  4. CLONAZEPAM [Suspect]
     Dosage: 0.5 MG, BID
  5. QUETIAPINE FUMARATE [Concomitant]
  6. QUETIAPINE FUMARATE [Concomitant]

REACTIONS (5)
  - ANXIETY [None]
  - CONDITION AGGRAVATED [None]
  - DRUG INTERACTION [None]
  - EATING DISORDER [None]
  - ELECTROCARDIOGRAM QT PROLONGED [None]
